FAERS Safety Report 23669914 (Version 1)
Quarter: 2024Q1

REPORT INFORMATION
  Report Type: Spontaneous
  Country: DE (occurrence: DE)
  Receive Date: 20240325
  Receipt Date: 20240325
  Transmission Date: 20240410
  Serious: Yes (Other)
  Sender: FDA-Public Use
  Company Number: DE-EMBRYOTOX-202306456

PATIENT
  Age: 1 Day
  Sex: Female
  Weight: 2.395 kg

DRUGS (5)
  1. PREDNISOLONE [Suspect]
     Active Substance: PREDNISOLONE
     Indication: Rheumatoid arthritis
     Dosage: 20 [MG/D ]/ 20 MG/D, GRADUALLY PHASED OUT (5 MG EVERY 10 D), GESTATION EXPOSURE?:3 TRIMESTERS, TI...
     Route: 064
     Dates: start: 20230804, end: 20230830
  2. ACETAMINOPHEN [Concomitant]
     Active Substance: ACETAMINOPHEN
     Indication: Rheumatoid arthritis
     Dosage: TIME INTERVAL: AS NECESSARY: 500 [MG/D ]/ SPORADICALLY, AS NEEDED, OTHER ADDITIONAL INFORMATION :...
     Route: 064
  3. IBUPROFEN [Concomitant]
     Active Substance: IBUPROFEN
     Indication: Rheumatoid arthritis
     Dosage: 1800 [MG/D ]/ 1200-1800 MG/D, GESTATION EXPOSURE:1 TRIMESTER, OTHER ADDITIONAL INFORMATION:8.6. -...
     Route: 064
     Dates: start: 20230322, end: 20230330
  4. MISOPROSTOL [Concomitant]
     Active Substance: MISOPROSTOL
     Indication: Labour induction
     Dosage: DETAILS UNKNOWN, GESTATION EXPOSURE: 3 TRIMESTERS, OTHER ADDITIONAL INFORMATION:37. - 37. GESTATI...
     Route: 064
     Dates: start: 20231005, end: 20231005
  5. CIMZIA [Suspect]
     Active Substance: CERTOLIZUMAB PEGOL
     Indication: Rheumatoid arthritis
     Dosage: GESTATION EXPOSURE:1 TRIMESTERS ,200 [MG/D ]/ SINCE 09/22, TIME TO EXPOSURE: DURING ALL 3 TRIMEST...
     Route: 064
     Dates: start: 20230119, end: 20231013

REACTIONS (2)
  - Small for dates baby [Recovered/Resolved]
  - Foetal exposure during pregnancy [Unknown]

NARRATIVE: CASE EVENT DATE: 20231001
